FAERS Safety Report 5734328-X (Version None)
Quarter: 2008Q2

REPORT INFORMATION
  Report Type: 
  Country: None (occurrence: None)
  Receive Date: 20080507
  Receipt Date: 20080428
  Transmission Date: 20081010
  Serious: Yes (Hospitalization)
  Sender: FDA-Public Use
  Company Number: TPA2008A00597

PATIENT
  Age: 61 Year
  Sex: Male
  Weight: 102.0593 kg

DRUGS (9)
  1. ACTOS [Suspect]
     Indication: TYPE 2 DIABETES MELLITUS
     Dosage: 45 MG, 1 IN 1 D, PER ORAL
     Route: 048
     Dates: start: 20050101, end: 20060201
  2. ACTOPLUS MET [Suspect]
     Indication: TYPE 2 DIABETES MELLITUS
     Dosage: 15 MG/500 MG, 3 IN 1 D, PER ORAL
     Route: 048
     Dates: start: 20060201, end: 20080410
  3. GLIPIZIDE XL (ANTI-DIABETICS) [Concomitant]
  4. COZAAR [Concomitant]
  5. METFORMIN HCL [Concomitant]
  6. MELOXICAM [Concomitant]
  7. TETRACYCLINE [Concomitant]
  8. BYETTA (ANTI-DIABETICS) [Concomitant]
  9. JANUMET (ANTI-DIABETICS) [Concomitant]

REACTIONS (4)
  - BENIGN LYMPH NODE NEOPLASM [None]
  - BLOOD GLUCOSE INCREASED [None]
  - LIVER DISORDER [None]
  - OEDEMA PERIPHERAL [None]
